FAERS Safety Report 11928097 (Version 1)
Quarter: 2016Q1

REPORT INFORMATION
  Report Type: Spontaneous
  Country: KW (occurrence: KW)
  Receive Date: 20160119
  Receipt Date: 20160119
  Transmission Date: 20160526
  Serious: Yes (Other)
  Sender: FDA-Public Use
  Company Number: PHHY2016KW002890

PATIENT
  Age: 37 Year
  Sex: Female

DRUGS (12)
  1. ACETYLSALICYLIC ACID [Suspect]
     Active Substance: ASPIRIN
     Indication: HYPOTHYROIDISM
     Route: 065
  2. ACETYLSALICYLIC ACID [Suspect]
     Active Substance: ASPIRIN
     Indication: NATURAL KILLER T CELL COUNT INCREASED
  3. ELTROXIN [Suspect]
     Active Substance: LEVOTHYROXINE
     Indication: NATURAL KILLER T CELL COUNT INCREASED
  4. GLUCOPHAGE [Suspect]
     Active Substance: METFORMIN HYDROCHLORIDE
     Indication: NATURAL KILLER T CELL COUNT INCREASED
  5. PROGESTERONE. [Suspect]
     Active Substance: PROGESTERONE
     Indication: HYPOTHYROIDISM
     Route: 065
  6. CLEXANE [Suspect]
     Active Substance: ENOXAPARIN SODIUM
     Indication: NATURAL KILLER T CELL COUNT INCREASED
  7. IVIGLOB EX [Suspect]
     Active Substance: HUMAN IMMUNOGLOBULIN G
     Indication: NATURAL KILLER T CELL COUNT INCREASED
  8. PROGESTERONE. [Suspect]
     Active Substance: PROGESTERONE
     Indication: NATURAL KILLER T CELL COUNT INCREASED
  9. IVIGLOB EX [Suspect]
     Active Substance: HUMAN IMMUNOGLOBULIN G
     Indication: HYPOTHYROIDISM
     Route: 065
  10. ELTROXIN [Suspect]
     Active Substance: LEVOTHYROXINE
     Indication: HYPOTHYROIDISM
     Route: 065
  11. GLUCOPHAGE [Suspect]
     Active Substance: METFORMIN HYDROCHLORIDE
     Indication: HYPOTHYROIDISM
     Route: 065
  12. CLEXANE [Suspect]
     Active Substance: ENOXAPARIN SODIUM
     Indication: HYPOTHYROIDISM
     Route: 065

REACTIONS (2)
  - Premature labour [Unknown]
  - Maternal exposure during pregnancy [Unknown]
